FAERS Safety Report 23719112 (Version 4)
Quarter: 2024Q2

REPORT INFORMATION
  Report Type: Report from Study
  Country: US (occurrence: US)
  Receive Date: 20240408
  Receipt Date: 20240502
  Transmission Date: 20240716
  Serious: Yes (Other)
  Sender: FDA-Public Use
  Company Number: US-BIOVITRUM-2024-US-005393

PATIENT
  Age: 69 Year
  Sex: Female

DRUGS (3)
  1. KINERET [Suspect]
     Active Substance: ANAKINRA
     Indication: Rheumatoid arthritis
     Dosage: DAILY
     Route: 058
  2. KINERET [Suspect]
     Active Substance: ANAKINRA
     Dosage: 100 MG, DAILY
     Route: 058
     Dates: start: 20240407
  3. KINERET [Suspect]
     Active Substance: ANAKINRA
     Dosage: 100 MG, DAILY
     Route: 058

REACTIONS (8)
  - Cataract [Unknown]
  - Neck pain [Unknown]
  - Rash macular [Unknown]
  - Foot fracture [Unknown]
  - Arthritis [Unknown]
  - Arthralgia [Unknown]
  - Drug ineffective [Unknown]
  - Hypertension [Unknown]

NARRATIVE: CASE EVENT DATE: 20240201
